FAERS Safety Report 14277087 (Version 1)
Quarter: 2017Q4

REPORT INFORMATION
  Report Type: Spontaneous
  Country: AR (occurrence: AR)
  Receive Date: 20171211
  Receipt Date: 20171211
  Transmission Date: 20180321
  Serious: Yes (Death)
  Sender: FDA-Public Use
  Company Number: AR-SA-2017SA247048

PATIENT
  Sex: Female

DRUGS (1)
  1. CAPRELSA [Suspect]
     Active Substance: VANDETANIB
     Indication: MEDULLARY THYROID CANCER
     Route: 048
     Dates: start: 20171113, end: 20171201

REACTIONS (2)
  - Ischaemic stroke [Fatal]
  - Hypertension [Fatal]

NARRATIVE: CASE EVENT DATE: 201711
